FAERS Safety Report 17491886 (Version 2)
Quarter: 2020Q1

REPORT INFORMATION
  Report Type: Spontaneous
  Country: ES (occurrence: ES)
  Receive Date: 20200304
  Receipt Date: 20200323
  Transmission Date: 20200409
  Serious: Yes (Hospitalization, Other)
  Sender: FDA-Public Use
  Company Number: ES-AUROBINDO-AUR-APL-2020-010424

PATIENT
  Age: 90 Year
  Sex: Female

DRUGS (4)
  1. ENALAPRIL 5 MG TABLETS [Interacting]
     Active Substance: ENALAPRIL
     Indication: PRODUCT USED FOR UNKNOWN INDICATION
     Dosage: 5 MILLIGRAM, ONCE A DAY
     Route: 048
     Dates: start: 20191126
  2. FUROSEMIDE 40 MG TABLETS [Suspect]
     Active Substance: FUROSEMIDE
     Indication: PRODUCT USED FOR UNKNOWN INDICATION
     Dosage: 40 MILLIGRAM, ONCE A DAY
     Route: 048
     Dates: start: 20191126, end: 20200108
  3. EDEMOX [Interacting]
     Active Substance: ACETAZOLAMIDE
     Indication: OEDEMA
     Dosage: 500 MILLIGRAM, ONCE IN 2 DAYS, (250 MG 2-0-0 L-M-V)
     Route: 048
     Dates: start: 20191212, end: 20200108
  4. SPIRONOLACTONE. [Interacting]
     Active Substance: SPIRONOLACTONE
     Indication: PRODUCT USED FOR UNKNOWN INDICATION
     Dosage: 25 MILLIGRAM, ONCE A DAY
     Route: 048
     Dates: start: 20191126, end: 20200108

REACTIONS (2)
  - Hyperkalaemia [Recovered/Resolved]
  - Hyponatraemia [Recovered/Resolved]

NARRATIVE: CASE EVENT DATE: 20200108
